FAERS Safety Report 25752910 (Version 1)
Quarter: 2025Q3

REPORT INFORMATION
  Report Type: Spontaneous
  Country: BR (occurrence: BR)
  Receive Date: 20250902
  Receipt Date: 20250902
  Transmission Date: 20251021
  Serious: Yes (Other)
  Sender: NOVO NORDISK
  Company Number: BR-NOVOPROD-1506929

PATIENT
  Age: 70 Year
  Sex: Female
  Weight: 93 kg

DRUGS (7)
  1. INSULIN HUMAN [Concomitant]
     Active Substance: INSULIN HUMAN
     Indication: Type 2 diabetes mellitus
     Dosage: 42 IU, QD (22 UNITS IN THE MORNING AND 20 UNITS AT NIGHT)
     Dates: start: 202310
  2. DAPAGLIFLOZIN [Concomitant]
     Active Substance: DAPAGLIFLOZIN
     Indication: Type 2 diabetes mellitus
     Dates: start: 2024
  3. GLICLAZIDE [Concomitant]
     Active Substance: GLICLAZIDE
     Indication: Type 2 diabetes mellitus
     Dates: start: 2024
  4. ROSUVASTATIN [Concomitant]
     Active Substance: ROSUVASTATIN
     Indication: Blood cholesterol abnormal
     Dates: start: 2023
  5. LOSARTAN [Concomitant]
     Active Substance: LOSARTAN
     Indication: Blood pressure abnormal
     Dates: start: 2023
  6. CILOSTAZOL [Concomitant]
     Active Substance: CILOSTAZOL
     Indication: Vein disorder
     Dates: start: 2021
  7. SAXENDA [Suspect]
     Active Substance: LIRAGLUTIDE
     Indication: Weight control
     Dosage: 1.2 MG, QD
     Dates: start: 2025

REACTIONS (2)
  - Glaucoma [Not Recovered/Not Resolved]
  - Drug effect less than expected [Unknown]

NARRATIVE: CASE EVENT DATE: 20250101
